FAERS Safety Report 13601361 (Version 1)
Quarter: 2017Q2

REPORT INFORMATION
  Report Type: Spontaneous
  Country: US (occurrence: US)
  Receive Date: 20170601
  Receipt Date: 20170601
  Transmission Date: 20170830
  Serious: Yes (Hospitalization, Other)
  Sender: FDA-Public Use
  Company Number: None

PATIENT
  Age: 79 Year
  Sex: Female
  Weight: 52.16 kg

DRUGS (16)
  1. TYLENOL [Concomitant]
     Active Substance: ACETAMINOPHEN
  2. PATANOL EYEDROPS [Concomitant]
  3. OXYGEN. [Concomitant]
     Active Substance: OXYGEN
  4. POLYETHYLENE GLYCOL [Suspect]
     Active Substance: POLYETHYLENE GLYCOLS
     Indication: COLONOSCOPY
     Dosage: QUANITY - USED BISACODYL 4-TAB 5MG TOTAL TAKEN 5-30-2017?FREQUENCY - ONLY USED LIKE DIRECTIONS FOR PROCEDURE?ROUTE - BY MOUTH, MIXED WITH 64 OZ GATORAIDE
     Route: 048
     Dates: start: 20170530, end: 20170530
  5. LOPRESSOR [Concomitant]
     Active Substance: METOPROLOL TARTRATE
  6. NASAL SALINE [Concomitant]
     Active Substance: SODIUM CHLORIDE
  7. ALBUTEROL. [Concomitant]
     Active Substance: ALBUTEROL
  8. SMOOTH MOVE TEA [Concomitant]
     Active Substance: SENNA LEAF
  9. ASPIRIN. [Concomitant]
     Active Substance: ASPIRIN
  10. STIOLTO INHALER [Concomitant]
  11. RESPIMAT INHALER [Concomitant]
  12. IBUPROFEN. [Concomitant]
     Active Substance: IBUPROFEN
  13. METOPROLOL TARTRATE. [Concomitant]
     Active Substance: METOPROLOL TARTRATE
  14. LIPITOR [Concomitant]
     Active Substance: ATORVASTATIN CALCIUM
  15. CALTRATE 600 + D3 PLUS MINERAL MINIS [Concomitant]
     Active Substance: CALCIUM\CHOLECALCIFEROL\COPPER\MAGNESIUM\MANGANESE\ZINC
  16. HERBAL SUPPLEMENT [Concomitant]
     Active Substance: HERBALS

REACTIONS (6)
  - Pelvic prolapse [None]
  - Constipation [None]
  - Rectal haemorrhage [None]
  - Irritable bowel syndrome [None]
  - Malaise [None]
  - Vomiting [None]

NARRATIVE: CASE EVENT DATE: 20170501
